FAERS Safety Report 6121994-2 (Version None)
Quarter: 2009Q1

REPORT INFORMATION
  Report Type: 
  Country: None (occurrence: None)
  Receive Date: 20090316
  Receipt Date: 20090227
  Transmission Date: 20090719
  Serious: No
  Sender: FDA-Public Use
  Company Number: C-09-0046

PATIENT
  Age: 65 Year
  Sex: Female
  Weight: 80.7403 kg

DRUGS (7)
  1. HOMATROPINE METHYLBROMIDE AND HYDROCODONE BITARTRATE [Suspect]
     Indication: BRONCHITIS
     Dosage: 1-2TSP BY MOUTH EV. 6HR
     Route: 048
     Dates: start: 20090219
  2. LAMISIL [Concomitant]
  3. ANAFRANIL [Concomitant]
  4. ATIVAN [Concomitant]
  5. ZYPREXA [Concomitant]
  6. VIBRAMYCIN [Concomitant]
  7. ADVAIR HFA [Concomitant]

REACTIONS (2)
  - APHTHOUS STOMATITIS [None]
  - TONGUE DISCOLOURATION [None]
